FAERS Safety Report 24553583 (Version 1)
Quarter: 2024Q4

REPORT INFORMATION
  Report Type: Spontaneous
  Country: US (occurrence: US)
  Receive Date: 20241028
  Receipt Date: 20241028
  Transmission Date: 20250115
  Serious: No
  Sender: ROCHE
  Company Number: US-ROCHE-3501356

PATIENT
  Sex: Male

DRUGS (1)
  1. NUTROPIN AQ [Suspect]
     Active Substance: SOMATROPIN
     Indication: Chronic kidney disease
     Dosage: (0.6MG/DAY INSTEAD OF 0.3MG)
     Route: 058

REACTIONS (6)
  - Product packaging quantity issue [Unknown]
  - Product complaint [Unknown]
  - Device use issue [Unknown]
  - No adverse event [Unknown]
  - Off label use [Unknown]
  - Overdose [Unknown]

NARRATIVE: CASE EVENT DATE: 20240122
